FAERS Safety Report 12946434 (Version 1)
Quarter: 2016Q4

REPORT INFORMATION
  Report Type: Spontaneous
  Country: US (occurrence: US)
  Receive Date: 20161115
  Receipt Date: 20161115
  Transmission Date: 20170207
  Serious: Yes (Other)
  Sender: FDA-Public Use
  Company Number: None

PATIENT
  Age: 72 Year
  Sex: Female
  Weight: 81.72 kg

DRUGS (1)
  1. FORTEO [Suspect]
     Active Substance: TERIPARATIDE
     Indication: OSTEOPOROSIS
     Route: 058
     Dates: start: 20161019

REACTIONS (6)
  - Pain in extremity [None]
  - Dizziness [None]
  - Nausea [None]
  - Hypotonia [None]
  - Impaired healing [None]
  - Bone cancer [None]

NARRATIVE: CASE EVENT DATE: 20161022
